FAERS Safety Report 14775723 (Version 3)
Quarter: 2018Q3

REPORT INFORMATION
  Report Type: Report from Study
  Country: CA (occurrence: CA)
  Receive Date: 20180418
  Receipt Date: 20180725
  Transmission Date: 20181010
  Serious: Yes (Hospitalization, Other)
  Sender: FDA-Public Use
  Company Number: CA-JNJFOC-20180337686

PATIENT
  Age: 62 Year
  Sex: Female
  Weight: 68.49 kg

DRUGS (2)
  1. REMICADE [Suspect]
     Active Substance: INFLIXIMAB
     Indication: CROHN^S DISEASE
     Route: 042
     Dates: start: 20170428
  2. REMICADE [Suspect]
     Active Substance: INFLIXIMAB
     Indication: CROHN^S DISEASE
     Dosage: STRENGTH = 100 MG
     Route: 042
     Dates: start: 20170510, end: 20180410

REACTIONS (4)
  - Urinary tract infection [Recovered/Resolved]
  - Hospitalisation [Not Recovered/Not Resolved]
  - Crohn^s disease [Unknown]
  - Renal disorder [Unknown]

NARRATIVE: CASE EVENT DATE: 20180326
